FAERS Safety Report 8349995-4 (Version None)
Quarter: 2012Q2

REPORT INFORMATION
  Report Type: 
  Country: None (occurrence: None)
  Receive Date: 20120510
  Receipt Date: 20120509
  Transmission Date: 20120825
  Serious: Yes (Other)
  Sender: FDA-Public Use
  Company Number: US-ROCHE-1008523

PATIENT
  Age: 39 Year
  Sex: Male

DRUGS (1)
  1. TAMIFLU [Suspect]
     Indication: INFLUENZA

REACTIONS (1)
  - EPILEPSY [None]
